FAERS Safety Report 9890654 (Version 1)
Quarter: 2014Q1

REPORT INFORMATION
  Report Type: Spontaneous
  Country: IT (occurrence: None)
  Receive Date: 20140210
  Receipt Date: 20140210
  Transmission Date: 20141002
  Serious: Yes (Hospitalization)
  Sender: FDA-Public Use
  Company Number: AUR-APL-2014-01276

PATIENT
  Age: 43 Year
  Sex: Male

DRUGS (3)
  1. AMOXICILLIN [Suspect]
     Indication: TOOTHACHE
     Route: 048
     Dates: start: 20131215, end: 20131220
  2. KETOPROFEN [Suspect]
     Indication: TOOTHACHE
     Route: 048
     Dates: start: 20131215, end: 20131220
  3. ATOVER (ENLAPRIL MALEATE W/LERCANIDIPIN HCL) [Concomitant]

REACTIONS (4)
  - Erythema [None]
  - Pruritus [None]
  - Rash generalised [None]
  - Adverse drug reaction [None]
